FAERS Safety Report 19638206 (Version 2)
Quarter: 2021Q3

REPORT INFORMATION
  Report Type: Spontaneous
  Country: NL (occurrence: NL)
  Receive Date: 20210730
  Receipt Date: 20210810
  Transmission Date: 20211014
  Serious: Yes (Other)
  Sender: FDA-Public Use
  Company Number: NL-TAKEDA-2021TUS047035

PATIENT
  Age: 33 Year
  Sex: Female

DRUGS (2)
  1. HUMAN NORMAL IMMUNOGLOBULIN [Suspect]
     Active Substance: HUMAN IMMUNOGLOBULIN G
     Dosage: 1 KILOGRAM, 1/WEEK
     Route: 042
  2. HUMAN NORMAL IMMUNOGLOBULIN [Suspect]
     Active Substance: HUMAN IMMUNOGLOBULIN G
     Indication: NEONATAL ALLOIMMUNE THROMBOCYTOPENIA
     Dosage: 0.5 GRAM PER KILOGRAM, 1/WEEK
     Route: 042

REACTIONS (7)
  - Intrauterine infection [Unknown]
  - Maternal exposure during pregnancy [Unknown]
  - Chronic villitis of unknown etiology [Unknown]
  - Placental insufficiency [Unknown]
  - Placental disorder [Unknown]
  - Off label use [Unknown]
  - Drug effective for unapproved indication [Unknown]
